FAERS Safety Report 16772108 (Version 1)
Quarter: 2019Q4

REPORT INFORMATION
  Report Type: Spontaneous
  Country: US (occurrence: US)
  Receive Date: 20190904
  Receipt Date: 20190904
  Transmission Date: 20200122
  Serious: Yes (Life-Threatening, Hospitalization, Disabling, Other)
  Sender: FDA-Public Use
  Company Number: None

PATIENT
  Age: 31 Year
  Sex: Female
  Weight: 85.5 kg

DRUGS (17)
  1. TYSABRI [Concomitant]
     Active Substance: NATALIZUMAB
  2. CLONEZAPAM [Concomitant]
     Active Substance: CLONAZEPAM
  3. BACOLOFEN [Concomitant]
  4. PROTONIX [Concomitant]
     Active Substance: PANTOPRAZOLE SODIUM
  5. ZOFRAN [Concomitant]
     Active Substance: ONDANSETRON HYDROCHLORIDE
  6. LEMTRADA [Suspect]
     Active Substance: ALEMTUZUMAB
     Indication: MULTIPLE SCLEROSIS
     Dosage: ?          OTHER FREQUENCY:5 DOSES FOR YEAR 1;?
     Route: 042
     Dates: start: 20170306, end: 20170310
  7. DICLOFENAC SODIUM GEL [Concomitant]
     Active Substance: DICLOFENAC SODIUM
  8. SHOWER BENCH REACHERS [Concomitant]
  9. EFFEXOR XR [Concomitant]
     Active Substance: VENLAFAXINE HYDROCHLORIDE
  10. NORITRYPTOLIN [Concomitant]
  11. LIDOCAINE PATCHES [Concomitant]
     Active Substance: LIDOCAINE
  12. XANAX [Concomitant]
     Active Substance: ALPRAZOLAM
  13. VITAMIN B12 [Concomitant]
     Active Substance: CYANOCOBALAMIN
  14. PHENERGERAGAN [Concomitant]
  15. MCKLENZINE [Concomitant]
  16. TTAMADOL [Concomitant]
  17. WHEELCHAIR [Concomitant]
     Active Substance: DEVICE

REACTIONS (8)
  - Gait inability [None]
  - Visual impairment [None]
  - Bedridden [None]
  - Posture abnormal [None]
  - Pain [None]
  - Multiple sclerosis relapse [None]
  - Hypophagia [None]
  - Vomiting [None]

NARRATIVE: CASE EVENT DATE: 20170925
